FAERS Safety Report 7630234-4 (Version None)
Quarter: 2011Q3

REPORT INFORMATION
  Report Type: 
  Country: None (occurrence: None)
  Receive Date: 20110722
  Receipt Date: 20110713
  Transmission Date: 20111222
  Serious: Yes (Hospitalization)
  Sender: FDA-Public Use
  Company Number: DE-SANOFI-AVENTIS-2011SA044875

PATIENT
  Age: 73 Year
  Sex: Male
  Weight: 90 kg

DRUGS (7)
  1. LOPERAMIDE [Concomitant]
     Route: 065
     Dates: start: 20110624
  2. OXALIPLATIN [Suspect]
     Route: 042
     Dates: start: 20110705, end: 20110705
  3. ATORVASTATIN [Concomitant]
     Route: 065
  4. CAPECITABINE [Suspect]
     Indication: RECTAL CANCER
     Route: 048
     Dates: start: 20110620, end: 20110703
  5. METOPROLOL SUCCINATE [Concomitant]
     Indication: HYPERTENSION
     Route: 065
  6. OXALIPLATIN [Suspect]
     Indication: RECTAL CANCER
     Route: 042
     Dates: start: 20110629, end: 20110705
  7. THERAPEUTIC RADIOPHARMACEUTICALS [Suspect]
     Indication: RECTAL CANCER
     Dates: start: 20110620, end: 20110709

REACTIONS (2)
  - URINARY RETENTION [None]
  - DIARRHOEA [None]
